FAERS Safety Report 4709575-6 (Version None)
Quarter: 2005Q3

REPORT INFORMATION
  Report Type: 
  Country: None (occurrence: None)
  Receive Date: 20050707
  Receipt Date: 20050615
  Transmission Date: 20060218
  Serious: Yes (Death, Other)
  Sender: FDA-Public Use
  Company Number: US_0506119643

PATIENT

DRUGS (1)
  1. ZYPREXA [Suspect]
     Dates: start: 20010101, end: 20030101

REACTIONS (1)
  - PANCREATITIS [None]
